FAERS Safety Report 8416285-0 (Version None)
Quarter: 2012Q2

REPORT INFORMATION
  Report Type: 
  Country: None (occurrence: None)
  Receive Date: 20120606
  Receipt Date: 20120524
  Transmission Date: 20120825
  Serious: Yes (Other)
  Sender: FDA-Public Use
  Company Number: DE-ELI_LILLY_AND_COMPANY-DE201203009101

PATIENT
  Age: 86 Year
  Sex: Female

DRUGS (2)
  1. MARCUMAR [Concomitant]
  2. ZYPREXA [Suspect]
     Dosage: 3.75 MG, UNK
     Route: 048
     Dates: start: 20110101

REACTIONS (6)
  - HAEMOGLOBIN INCREASED [None]
  - MEAN CELL VOLUME INCREASED [None]
  - MEAN CELL HAEMOGLOBIN CONCENTRATION INCREASED [None]
  - BLOOD PRESSURE INCREASED [None]
  - POLYCYTHAEMIA [None]
  - HAEMATOCRIT INCREASED [None]
